FAERS Safety Report 6269392-5 (Version None)
Quarter: 2009Q3

REPORT INFORMATION
  Report Type: 
  Country: None (occurrence: None)
  Receive Date: 20090713
  Receipt Date: 20090625
  Transmission Date: 20100115
  Serious: Yes (Other)
  Sender: FDA-Public Use
  Company Number: 319801

PATIENT
  Age: 67 Year
  Sex: Male

DRUGS (15)
  1. CIPROFLOXACIN [Suspect]
     Indication: ABSCESS
     Dosage: 400 MG, INTRAVENOUS
     Route: 042
     Dates: end: 20090504
  2. ACETAZOLAMIDE [Suspect]
     Dosage: DOSE:250MG FREQUENCY: 2/1 DAYS, INTRAVENOUS
     Route: 042
     Dates: start: 20090506
  3. (MELATONIN) [Suspect]
     Indication: SLEEP DISORDER
     Dosage: 3 MG, ORAL
     Route: 048
     Dates: start: 20090422
  4. FLUOXETINE [Suspect]
     Indication: DEPRESSION
     Dosage: 40 MG, ORAL
     Route: 048
     Dates: start: 20090501
  5. FLUOXETINE [Suspect]
     Dosage: 20 MG, ORAL
     Route: 048
     Dates: end: 20090430
  6. (TIGECYCLINE) [Suspect]
     Indication: ABSCESS
     Dosage: DOSE: 50MG FREQUENCY: 2/1 DAY, ORAL
     Route: 048
     Dates: end: 20090504
  7. ASPIRIN [Concomitant]
  8. (BISOPROLOL) [Concomitant]
  9. (DIGOXIN) [Concomitant]
  10. (FUROSEMIDE) [Concomitant]
  11. (LANSOPRAZOLE) [Concomitant]
  12. RAMIPRIL [Concomitant]
  13. ALBUTEROL [Concomitant]
  14. SIMVASTATIN [Concomitant]
  15. (SPIRONOLACTONE) [Concomitant]

REACTIONS (2)
  - ALANINE AMINOTRANSFERASE INCREASED [None]
  - ASPARTATE AMINOTRANSFERASE INCREASED [None]
